FAERS Safety Report 10510731 (Version 1)
Quarter: 2014Q3

REPORT INFORMATION
  Report Type: Spontaneous
  Country: US (occurrence: None)
  Receive Date: 20140924
  Receipt Date: 20140924
  Transmission Date: 20150326
  Serious: Yes (Hospitalization)
  Sender: FDA-Public Use
  Company Number: 2013STPI000408

PATIENT
  Age: 82 Year
  Sex: Male
  Weight: 95.2 kg

DRUGS (3)
  1. MATULANE [Suspect]
     Active Substance: PROCARBAZINE HYDROCHLORIDE
     Indication: B-CELL LYMPHOMA
     Route: 048
     Dates: start: 201309
  2. PREDNISONE (PREDNISONE) [Suspect]
     Active Substance: PREDNISONE
  3. ETOPOSIDE (ETOPOSIDE) [Suspect]
     Active Substance: ETOPOSIDE

REACTIONS (1)
  - Cellulitis [None]

NARRATIVE: CASE EVENT DATE: 20130930
